FAERS Safety Report 7359870-X (Version None)
Quarter: 2011Q1

REPORT INFORMATION
  Report Type: 
  Country: None (occurrence: None)
  Receive Date: 20110317
  Receipt Date: 20110316
  Transmission Date: 20110831
  Serious: Yes (Other)
  Sender: FDA-Public Use
  Company Number: VE-PFIZER INC-2010143932

PATIENT
  Age: 70 Year
  Sex: Female
  Weight: 58 kg

DRUGS (7)
  1. LYRICA [Suspect]
     Indication: NEUROPATHY PERIPHERAL
     Dosage: 75 MG, 1X/DAY
     Route: 048
     Dates: start: 20100927, end: 20101011
  2. LYRICA [Suspect]
     Dosage: 300 MG, 1X/DAY
     Route: 048
     Dates: start: 20101018, end: 20101025
  3. GLUCOSAMINE [Concomitant]
     Indication: OSTEOPOROSIS
     Dosage: UNK
     Route: 048
     Dates: end: 20100101
  4. ALENDRONATE SODIUM [Concomitant]
     Indication: OSTEOPOROSIS
     Dosage: UNK
     Route: 048
     Dates: end: 20100101
  5. LYRICA [Suspect]
     Dosage: 150 MG, 1X/DAY
     Route: 048
     Dates: start: 20101011, end: 20101018
  6. CYMBALTA [Concomitant]
     Route: 048
  7. CALCIUM CITRATE/MAGNESIUM [Concomitant]
     Indication: OSTEOPOROSIS
     Dosage: 1900 MG, 1X/DAY
     Route: 048
     Dates: end: 20100101

REACTIONS (5)
  - DYSPNOEA [None]
  - ABDOMINAL DISTENSION [None]
  - FATIGUE [None]
  - AGGRESSION [None]
  - WEIGHT INCREASED [None]
